FAERS Safety Report 5224859-3 (Version None)
Quarter: 2007Q1

REPORT INFORMATION
  Report Type: 
  Country: None (occurrence: None)
  Receive Date: 20070131
  Receipt Date: 20070119
  Transmission Date: 20070707
  Serious: Yes (Death, Life-Threatening, Hospitalization)
  Sender: FDA-Public Use
  Company Number: FR-NOVOPROD-259402

PATIENT
  Age: 85 Year
  Sex: Female

DRUGS (9)
  1. NOVONORM [Suspect]
     Indication: DIABETES MELLITUS NON-INSULIN-DEPENDENT
     Dosage: 3 MG, QD
     Route: 048
  2. ACTRAPID [Concomitant]
     Indication: DIABETES MELLITUS NON-INSULIN-DEPENDENT
     Route: 058
  3. LANTUS [Concomitant]
     Indication: DIABETES MELLITUS NON-INSULIN-DEPENDENT
     Route: 058
  4. LASIX [Concomitant]
     Dosage: 40 MG, QD
     Route: 048
  5. CARDENSIEL [Concomitant]
     Dosage: 1 UNK, QD
     Route: 048
  6. XANAX [Concomitant]
     Dosage: .25 MG, QD
     Route: 048
  7. NITRODERM [Concomitant]
     Dosage: 10 MG, UNK
  8. KARDEGIC                           /00002703/ [Concomitant]
     Dosage: 75 MG, QD
     Route: 048
  9. DIFFU K [Concomitant]
     Dosage: 3 UNK, QD

REACTIONS (3)
  - CARDIAC ARREST [None]
  - DEHYDRATION [None]
  - DIABETIC COMA [None]
